FAERS Safety Report 9802480 (Version 1)
Quarter: 2014Q1

REPORT INFORMATION
  Report Type: Report from Study
  Country: US (occurrence: US)
  Receive Date: 20140107
  Receipt Date: 20140107
  Transmission Date: 20141002
  Serious: Yes (Death)
  Sender: FDA-Public Use
  Company Number: US-ROCHE-1330128

PATIENT
  Sex: Female
  Weight: 90.8 kg

DRUGS (6)
  1. AVASTIN [Suspect]
     Indication: NON-SMALL CELL LUNG CANCER
     Route: 042
     Dates: start: 20111208
  2. DEXAMETHASONE [Concomitant]
     Route: 042
     Dates: start: 20111208
  3. ONDANSETRON [Concomitant]
     Route: 042
     Dates: start: 20111208
  4. FAMOTIDINE [Concomitant]
     Route: 042
     Dates: start: 20111208
  5. CARBOPLATIN [Concomitant]
     Route: 042
     Dates: start: 20111208
  6. PACLITAXEL [Concomitant]
     Route: 042
     Dates: start: 20111208

REACTIONS (1)
  - Death [Fatal]
